FAERS Safety Report 17060430 (Version 1)
Quarter: 2019Q4

REPORT INFORMATION
  Report Type: Spontaneous
  Country: US (occurrence: US)
  Receive Date: 20191121
  Receipt Date: 20191121
  Transmission Date: 20200122
  Serious: No
  Sender: FDA-Public Use
  Company Number: US-ASTRAZENECA-2019SF52627

PATIENT
  Age: 806 Month
  Sex: Female

DRUGS (11)
  1. ZYRTEC [Concomitant]
     Active Substance: CETIRIZINE HYDROCHLORIDE
     Indication: HYPERSENSITIVITY
  2. LEVOTHYROXINE. [Concomitant]
     Active Substance: LEVOTHYROXINE
     Indication: HYPOTHYROIDISM
  3. PLAQUENIL [Concomitant]
     Active Substance: HYDROXYCHLOROQUINE SULFATE
  4. FASENRA [Suspect]
     Active Substance: BENRALIZUMAB
     Indication: ASTHMA
     Route: 058
     Dates: start: 201811
  5. CEFUROXIME. [Suspect]
     Active Substance: CEFUROXIME
     Route: 065
  6. TYLENOL [Concomitant]
     Active Substance: ACETAMINOPHEN
     Indication: HEADACHE
     Dosage: 500.0MG AS REQUIRED
  7. NEURONTIN [Concomitant]
     Active Substance: GABAPENTIN
     Indication: SOMNOLENCE
  8. GABAPENTIN. [Concomitant]
     Active Substance: GABAPENTIN
     Indication: SJOGREN^S SYNDROME
  9. SINGULAIR [Concomitant]
     Active Substance: MONTELUKAST SODIUM
     Indication: MULTIPLE ALLERGIES
  10. RED YEAST RICE [Concomitant]
     Active Substance: DIETARY SUPPLEMENT
     Indication: BLOOD CHOLESTEROL
  11. CRESTOR [Suspect]
     Active Substance: ROSUVASTATIN CALCIUM
     Indication: BLOOD CHOLESTEROL
     Route: 048

REACTIONS (20)
  - Tenderness [Unknown]
  - Throat irritation [Unknown]
  - Diarrhoea [Unknown]
  - Headache [Unknown]
  - Peripheral swelling [Unknown]
  - Oropharyngeal pain [Unknown]
  - Eosinophil count increased [Unknown]
  - Arthropod bite [Unknown]
  - Cataract [Unknown]
  - Product dose omission [Unknown]
  - Blood pressure increased [Unknown]
  - Back pain [Unknown]
  - Hypersensitivity [Unknown]
  - Osteoarthritis [Unknown]
  - Arthralgia [Unknown]
  - Eye swelling [Unknown]
  - Sinusitis [Unknown]
  - Rhinorrhoea [Unknown]
  - Lymphadenopathy [Unknown]
  - Memory impairment [Unknown]

NARRATIVE: CASE EVENT DATE: 201901
